FAERS Safety Report 4860662-1 (Version None)
Quarter: 2005Q4

REPORT INFORMATION
  Report Type: 
  Country: None (occurrence: None)
  Receive Date: 20051216
  Receipt Date: 20051129
  Transmission Date: 20060501
  Serious: Yes (Other)
  Sender: FDA-Public Use
  Company Number: USA0510110977

PATIENT
  Age: 14 Year
  Sex: Female
  Weight: 42.2 kg

DRUGS (5)
  1. STRATTERA [Suspect]
     Indication: ATTENTION DEFICIT/HYPERACTIVITY DISORDER
     Dosage: 60 MG, EACH MORNING, ORAL
     Route: 048
     Dates: start: 20040303, end: 20050601
  2. ASPIRIN [Concomitant]
  3. ZOLOFT [Concomitant]
  4. VASOTEC [Concomitant]
  5. DIGOXIN [Concomitant]

REACTIONS (6)
  - COAGULATION TIME SHORTENED [None]
  - HEPATOMEGALY [None]
  - INGROWING NAIL [None]
  - PETECHIAE [None]
  - PLATELET COUNT DECREASED [None]
  - PROTHROMBIN TIME PROLONGED [None]
